FAERS Safety Report 18895868 (Version 1)
Quarter: 2021Q1

REPORT INFORMATION
  Report Type: Spontaneous
  Country: DE (occurrence: DE)
  Receive Date: 20210216
  Receipt Date: 20210216
  Transmission Date: 20210420
  Serious: No
  Sender: FDA-Public Use
  Company Number: DE-ALKEM LABORATORIES LIMITED-DE-ALKEM-2020-09581

PATIENT
  Sex: Female

DRUGS (2)
  1. PREGABALIN. [Suspect]
     Active Substance: PREGABALIN
     Indication: POLYNEUROPATHY
     Dosage: 50 MILLIGRAM
     Route: 065
     Dates: start: 202008
  2. PREGABALIN. [Suspect]
     Active Substance: PREGABALIN
     Dosage: 75 MILLIGRAM
     Route: 065
     Dates: start: 202008

REACTIONS (4)
  - Pain in extremity [Unknown]
  - Intentional dose omission [Unknown]
  - Drug ineffective [Unknown]
  - Peripheral swelling [Unknown]
